FAERS Safety Report 5097339-6 (Version None)
Quarter: 2006Q3

REPORT INFORMATION
  Report Type: 
  Country: None (occurrence: None)
  Receive Date: 20060906
  Receipt Date: 20060811
  Transmission Date: 20061208
  Serious: Yes (Hospitalization)
  Sender: FDA-Public Use
  Company Number: DE-GLAXOSMITHKLINE-D0050604A

PATIENT
  Age: 41 Year
  Sex: Male
  Weight: 75 kg

DRUGS (4)
  1. TELZIR [Suspect]
     Indication: SYSTEMIC ANTIVIRAL TREATMENT
     Dosage: 700MG TWICE PER DAY
     Route: 065
     Dates: start: 20060727, end: 20060810
  2. TRIZIVIR [Suspect]
     Indication: SYSTEMIC ANTIVIRAL TREATMENT
     Route: 065
     Dates: start: 20000301, end: 20040701
  3. COMBIVIR [Concomitant]
     Indication: SYSTEMIC ANTIVIRAL TREATMENT
     Route: 065
     Dates: start: 19980801
  4. VIRACEPT [Concomitant]
     Indication: SYSTEMIC ANTIVIRAL TREATMENT
     Route: 065
     Dates: start: 19980801

REACTIONS (8)
  - ENANTHEMA [None]
  - HYPERSENSITIVITY [None]
  - LYMPHADENOPATHY [None]
  - PHARYNGOLARYNGEAL PAIN [None]
  - PRURITUS [None]
  - RASH [None]
  - RASH MACULO-PAPULAR [None]
  - THIRST [None]
